FAERS Safety Report 7668891 (Version 9)
Quarter: 2012Q4

REPORT INFORMATION
  Report Type: 
  Country: US (occurrence: US)
  Receive Date: 20101115
  Receipt Date: 20121113
  Transmission Date: 20130627
  Serious: Yes (Hospitalization, Disabling, Other)
  Sender: FDA-Public Use
  Company Number: US-MERCK-1011USA01579

PATIENT

DRUGS (6)
  1. FOSAMAX [Suspect]
     Indication: OSTEOPOROSIS
     Dosage: 70 mg, QW
     Route: 048
     Dates: start: 20010109, end: 20090319
  2. FOSAMAX [Suspect]
     Indication: OSTEOPENIA
  3. CENTRUM (MINERALS (UNSPECIFIED) (+) VITAMINS (UNSPECIFIED)) [Concomitant]
     Dates: start: 2001
  4. CITRICAL [Concomitant]
     Dosage: 1500 mg, qd
     Dates: start: 2001
  5. PREMARIN [Concomitant]
     Dosage: 0.3 mg, UNK
     Dates: start: 19991208, end: 20070319
  6. FOSAMAX [Suspect]
     Dosage: 70 mg, UNK
     Route: 048
     Dates: start: 20080217

REACTIONS (31)
  - Femur fracture [Not Recovered/Not Resolved]
  - Osteoporosis [Not Recovered/Not Resolved]
  - Stress fracture [Not Recovered/Not Resolved]
  - Low turnover osteopathy [Not Recovered/Not Resolved]
  - Muscle atrophy [Not Recovered/Not Resolved]
  - Intramedullary rod insertion [Unknown]
  - Uterine disorder [Unknown]
  - Femur fracture [Not Recovered/Not Resolved]
  - Carbohydrate antigen 125 increased [Unknown]
  - Fungal infection [Unknown]
  - Inflammation of wound [Unknown]
  - Osteoporosis [Unknown]
  - Ovarian cyst [Unknown]
  - Pelvic adhesions [Unknown]
  - Rosacea [Unknown]
  - Tooth disorder [Unknown]
  - Urinary incontinence [Unknown]
  - Uterine leiomyoma [Unknown]
  - Vaginal odour [Unknown]
  - Vitamin D increased [Unknown]
  - Sensitivity of teeth [Unknown]
  - Vulvovaginal candidiasis [Unknown]
  - Foot fracture [Unknown]
  - Calculus ureteric [Unknown]
  - Sinusitis [Unknown]
  - Bronchitis [Unknown]
  - Rhinitis allergic [Unknown]
  - Back pain [Unknown]
  - Arthralgia [Unknown]
  - Arthralgia [Unknown]
  - Arthralgia [Unknown]
